FAERS Safety Report 16175577 (Version 2)
Quarter: 2019Q2

REPORT INFORMATION
  Report Type: Spontaneous
  Country: US (occurrence: US)
  Receive Date: 20190409
  Receipt Date: 20190503
  Transmission Date: 20190711
  Serious: Yes (Hospitalization)
  Sender: FDA-Public Use
  Company Number: US-OTSUKA-2017_028846

PATIENT
  Age: 20 Year
  Sex: Male

DRUGS (5)
  1. ARIPIPRAZOLE. [Suspect]
     Active Substance: ARIPIPRAZOLE
     Indication: SCHIZOAFFECTIVE DISORDER BIPOLAR TYPE
     Dosage: UNK
     Route: 065
     Dates: start: 201801, end: 201902
  2. ZYPREXA [Concomitant]
     Active Substance: OLANZAPINE
     Indication: HALLUCINATION
     Dosage: 15 MG, BID
     Route: 065
     Dates: start: 201712
  3. ZYPREXA [Concomitant]
     Active Substance: OLANZAPINE
     Indication: PARANOIA
  4. ABILIFY [Suspect]
     Active Substance: ARIPIPRAZOLE
     Indication: SCHIZOAFFECTIVE DISORDER BIPOLAR TYPE
     Dosage: 20 MG, QD
     Route: 065
     Dates: start: 201801, end: 201802
  5. ABILIFY MAINTENA [Suspect]
     Active Substance: ARIPIPRAZOLE
     Indication: SCHIZOAFFECTIVE DISORDER BIPOLAR TYPE
     Dosage: 400 MG, QM
     Route: 065
     Dates: start: 201902

REACTIONS (6)
  - Derealisation [Recovered/Resolved]
  - Refusal of treatment by patient [Unknown]
  - Agitation [Recovered/Resolved]
  - Product use in unapproved indication [Unknown]
  - Treatment noncompliance [Unknown]
  - Aggression [Recovered/Resolved]

NARRATIVE: CASE EVENT DATE: 201902
